APPROVED DRUG PRODUCT: METATENSIN #4
Active Ingredient: RESERPINE; TRICHLORMETHIAZIDE
Strength: 0.1MG;4MG
Dosage Form/Route: TABLET;ORAL
Application: N012972 | Product #002
Applicant: SANOFI AVENTIS US LLC
Approved: Approved Prior to Jan 1, 1982 | RLD: No | RS: No | Type: DISCN